FAERS Safety Report 9171190 (Version 1)
Quarter: 2013Q1

REPORT INFORMATION
  Report Type: Report from Study
  Country: AU (occurrence: AU)
  Receive Date: 20130319
  Receipt Date: 20130319
  Transmission Date: 20140127
  Serious: Yes (Other)
  Sender: FDA-Public Use
  Company Number: AU-BAYER-2013-029720

PATIENT
  Age: 39 Year
  Sex: Female

DRUGS (1)
  1. BETAFERON [Suspect]
     Indication: MULTIPLE SCLEROSIS
     Dosage: 250 ?G/ML, QOD
     Route: 058
     Dates: start: 20120914, end: 20130218

REACTIONS (2)
  - Drug ineffective [Unknown]
  - Multiple sclerosis relapse [Unknown]
